FAERS Safety Report 14559236 (Version 1)
Quarter: 2018Q1

REPORT INFORMATION
  Report Type: Spontaneous
  Country: US (occurrence: US)
  Receive Date: 20180221
  Receipt Date: 20180221
  Transmission Date: 20180509
  Serious: No
  Sender: FDA-Public Use
  Company Number: US-009507513-1802USA007581

PATIENT
  Age: 24 Year
  Sex: Female
  Weight: 67.7 kg

DRUGS (1)
  1. NEXPLANON [Suspect]
     Active Substance: ETONOGESTREL
     Dosage: 1 IMPLANT, UNK
     Route: 059
     Dates: start: 201711, end: 20180118

REACTIONS (2)
  - Complication associated with device [Recovered/Resolved]
  - Pain [Unknown]
